FAERS Safety Report 7813934-2 (Version None)
Quarter: 2011Q4

REPORT INFORMATION
  Report Type: 
  Country: None (occurrence: None)
  Receive Date: 20111014
  Receipt Date: 20111011
  Transmission Date: 20120403
  Serious: Yes (Hospitalization, Congenital Anomaly, Other)
  Sender: FDA-Public Use
  Company Number: US-PFIZER INC-2010092599

PATIENT
  Sex: Female
  Weight: 3 kg

DRUGS (5)
  1. ZOLOFT [Suspect]
     Dosage: 75 MG, DAILY
     Route: 064
  2. MECLOZINE W/PYRIDOXINE [Concomitant]
     Dosage: UNK
     Route: 064
  3. ZOLOFT [Suspect]
     Dosage: 25 MG, UNK
     Route: 064
     Dates: start: 20060101
  4. MULTI-VITAMINS [Concomitant]
     Dosage: UNK
     Route: 064
  5. ZOLOFT [Suspect]
     Indication: DEPRESSION
     Dosage: 50 MG, DAILY
     Route: 064
     Dates: start: 20030101

REACTIONS (16)
  - AORTIC VALVE ATRESIA [None]
  - CARDIAC MURMUR [None]
  - GASTROOESOPHAGEAL REFLUX DISEASE [None]
  - OESOPHAGEAL STENOSIS [None]
  - SPINE MALFORMATION [None]
  - VACTERL SYNDROME [None]
  - TRACHEO-OESOPHAGEAL FISTULA [None]
  - PYELOCALIECTASIS [None]
  - ANAL ATRESIA [None]
  - OESOPHAGEAL ATRESIA [None]
  - MATERNAL EXPOSURE DURING PREGNANCY [None]
  - PATENT DUCTUS ARTERIOSUS [None]
  - FEMALE GENITAL TRACT FISTULA [None]
  - BRADYCARDIA FOETAL [None]
  - COARCTATION OF THE AORTA [None]
  - VESICOURETERIC REFLUX [None]
